FAERS Safety Report 15812956 (Version 1)
Quarter: 2019Q1

REPORT INFORMATION
  Report Type: Spontaneous
  Country: US (occurrence: US)
  Receive Date: 20190111
  Receipt Date: 20190111
  Transmission Date: 20190417
  Serious: No
  Sender: FDA-Public Use
  Company Number: US-GLAXOSMITHKLINE-US2019002396

PATIENT

DRUGS (2)
  1. EXCEDRIN [Suspect]
     Active Substance: ACETAMINOPHEN\ASPIRIN\CAFFEINE
     Indication: PAIN
     Dosage: UNK,(2 TABLETS)
  2. ASPIRIN + CAFFEINE + SALICYLAMIDE [Suspect]
     Active Substance: ASPIRIN\CAFFEINE\SALICYLAMIDE
     Indication: PAIN
     Dosage: UNK

REACTIONS (1)
  - Contraindicated product administered [Unknown]
